FAERS Safety Report 8956050 (Version 1)
Quarter: 2012Q4

REPORT INFORMATION
  Report Type: 
  Country: US (occurrence: US)
  Receive Date: 20121210
  Receipt Date: 20121210
  Transmission Date: 20130627
  Serious: Yes (Other)
  Sender: FDA-Public Use
  Company Number: PHEH2012US024183

PATIENT
  Sex: Male

DRUGS (2)
  1. TEGRETOL [Suspect]
     Dosage: UNK UKN, UNK
  2. NEURONTIN [Concomitant]
     Indication: DIABETIC NEUROPATHY
     Dosage: UNK UKN, UNK
     Dates: start: 2004

REACTIONS (1)
  - Diabetes mellitus [Unknown]
